FAERS Safety Report 6692778-1 (Version None)
Quarter: 2010Q2

REPORT INFORMATION
  Report Type: 
  Country: None (occurrence: None)
  Receive Date: 20100413
  Receipt Date: 20100408
  Transmission Date: 20101027
  Serious: Yes (Hospitalization, Disabling)
  Sender: FDA-Public Use
  Company Number: 2010021953

PATIENT
  Sex: Female
  Weight: 70.3075 kg

DRUGS (8)
  1. ZEMAIRA [Suspect]
     Indication: ALPHA-1 ANTI-TRYPSIN DEFICIENCY
     Dosage: 17 VIALS MONTHLY INTRAVENOUS (NOT OTHERWISE SPECIDIED)
     Route: 042
  2. ACIPHEX [Concomitant]
  3. ADVAIR HFA [Concomitant]
  4. SPIRIVA [Concomitant]
  5. LUNESTA [Concomitant]
  6. COMBIVENT [Concomitant]
  7. CRESTOR [Concomitant]
  8. CELEBREX [Concomitant]

REACTIONS (1)
  - CATARACT [None]
